FAERS Safety Report 13801238 (Version 1)
Quarter: 2017Q3

REPORT INFORMATION
  Report Type: Spontaneous
  Country: GB (occurrence: GB)
  Receive Date: 20170727
  Receipt Date: 20170727
  Transmission Date: 20171127
  Serious: Yes (Other)
  Sender: FDA-Public Use
  Company Number: GB-JNJFOC-20170720048

PATIENT
  Age: 78 Year
  Sex: Female
  Weight: 46 kg

DRUGS (19)
  1. FERROUS SULFATE. [Concomitant]
     Active Substance: FERROUS SULFATE
     Route: 065
     Dates: start: 20170515
  2. TIOTROPIUM BROMIDE [Concomitant]
     Active Substance: TIOTROPIUM BROMIDE
     Dosage: DOSE: 18 MCG/24HR
     Route: 065
     Dates: start: 20170224
  3. MIRTAZAPINE. [Concomitant]
     Active Substance: MIRTAZAPINE
     Route: 065
     Dates: start: 20170515
  4. XARELTO [Suspect]
     Active Substance: RIVAROXABAN
     Indication: LOWER RESPIRATORY TRACT INFECTION
     Route: 048
  5. CEFALEXIN [Concomitant]
     Active Substance: CEPHALEXIN
     Route: 065
     Dates: start: 20170428
  6. SPRILON [Concomitant]
     Route: 065
     Dates: start: 20170511
  7. CITARABIN [Concomitant]
     Route: 065
     Dates: start: 20170428
  8. CARBOCISTEINE [Concomitant]
     Active Substance: CARBOCYSTEINE
     Route: 065
     Dates: start: 20170515
  9. OMEPRAZOLE. [Concomitant]
     Active Substance: OMEPRAZOLE
     Route: 065
     Dates: start: 20170515
  10. HYDROCORTISONE W/NYSTATIN [Concomitant]
     Route: 065
     Dates: start: 20170525
  11. SERETIDE [Concomitant]
     Active Substance: FLUTICASONE PROPIONATE\SALMETEROL XINAFOATE
     Route: 065
     Dates: start: 20170515
  12. TAPENTADOL [Concomitant]
     Active Substance: TAPENTADOL
     Route: 065
     Dates: start: 20170213
  13. BUMETANIDE. [Concomitant]
     Active Substance: BUMETANIDE
     Route: 065
     Dates: start: 20170428
  14. ALENDRONIC ACID [Concomitant]
     Active Substance: ALENDRONIC ACID
     Dosage: 70 MG 1 WEEKS.
     Route: 065
     Dates: start: 20170321
  15. NAPROXEN. [Concomitant]
     Active Substance: NAPROXEN
     Route: 065
     Dates: start: 20170515
  16. PARACETAMOL [Concomitant]
     Active Substance: ACETAMINOPHEN
     Route: 065
     Dates: start: 20170515
  17. CALCICHEW [Concomitant]
     Active Substance: CALCIUM CARBONATE
     Route: 065
     Dates: start: 20170515
  18. AMOXICILLIN. [Concomitant]
     Active Substance: AMOXICILLIN
     Route: 065
     Dates: start: 20170629
  19. VENTOLIN [Concomitant]
     Active Substance: ALBUTEROL SULFATE
     Route: 065
     Dates: start: 20170515

REACTIONS (1)
  - Rash pruritic [Recovering/Resolving]

NARRATIVE: CASE EVENT DATE: 20170715
